FAERS Safety Report 15750909 (Version 3)
Quarter: 2022Q2

REPORT INFORMATION
  Report Type: Spontaneous
  Country: DE (occurrence: DE)
  Receive Date: 20181221
  Receipt Date: 20220428
  Transmission Date: 20220721
  Serious: Yes (Death, Life-Threatening, Hospitalization, Other)
  Sender: FDA-Public Use
  Company Number: GXKR2009DE06157

PATIENT
  Age: 26 Year
  Sex: Male

DRUGS (4)
  1. CARBAMAZEPINE [Suspect]
     Active Substance: CARBAMAZEPINE
     Indication: Bipolar disorder
     Dosage: UNK
     Route: 065
  2. HEPARIN [Suspect]
     Active Substance: HEPARIN SODIUM
     Indication: Anticoagulant therapy
     Dosage: 15000 IE/ 50 ML NACL
     Route: 042
  3. HEPARIN [Suspect]
     Active Substance: HEPARIN SODIUM
     Indication: Anticoagulant therapy
  4. ARGATROBAN [Suspect]
     Active Substance: ARGATROBAN
     Indication: Anticoagulant therapy
     Dosage: UNK
     Route: 062

REACTIONS (16)
  - Heparin-induced thrombocytopenia [Fatal]
  - Pain in extremity [Fatal]
  - Peripheral coldness [Fatal]
  - Renal failure [Fatal]
  - Right ventricular failure [Fatal]
  - Iliac artery occlusion [Fatal]
  - Peripheral artery occlusion [Fatal]
  - Pulmonary embolism [Fatal]
  - Toxic epidermal necrolysis [Fatal]
  - Coagulopathy [Fatal]
  - Blister [Not Recovered/Not Resolved]
  - Skin exfoliation [Not Recovered/Not Resolved]
  - Mucosal ulceration [Not Recovered/Not Resolved]
  - Gastrointestinal disorder [Not Recovered/Not Resolved]
  - Respiratory disorder [Not Recovered/Not Resolved]
  - Eye disorder [Not Recovered/Not Resolved]
